FAERS Safety Report 9293581 (Version 1)
Quarter: 2013Q2

REPORT INFORMATION
  Report Type: Spontaneous
  Country: US (occurrence: US)
  Receive Date: 20130516
  Receipt Date: 20130516
  Transmission Date: 20140414
  Serious: Yes (Hospitalization)
  Sender: FDA-Public Use
  Company Number: US-ABBOTT-13P-163-1086887-00

PATIENT
  Sex: Male

DRUGS (7)
  1. DRONABINOL [Suspect]
     Indication: DECREASED APPETITE
     Dates: start: 201208
  2. BACLOFEN [Concomitant]
     Indication: MUSCLE SPASTICITY
  3. VARIETY OF TOPICAL WOUND CARE PRODUCTS [Concomitant]
     Indication: SKIN ULCER
  4. TOLTERODINE [Concomitant]
     Indication: NEUROGENIC BLADDER
  5. DIAZEPAM [Concomitant]
     Indication: MUSCLE SPASTICITY
     Dosage: AT BEDTIME
  6. TIZANIDINE [Concomitant]
     Indication: MUSCLE SPASTICITY
  7. UNNAMED MEDICATION [Concomitant]
     Indication: BOWEL MOVEMENT IRREGULARITY

REACTIONS (6)
  - Infection [Not Recovered/Not Resolved]
  - Poor quality drug administered [Not Recovered/Not Resolved]
  - Drug ineffective [Not Recovered/Not Resolved]
  - Weight decreased [Not Recovered/Not Resolved]
  - Paraspinal abscess [Not Recovered/Not Resolved]
  - Pneumonia [Not Recovered/Not Resolved]
